FAERS Safety Report 5144554-9 (Version None)
Quarter: 2006Q4

REPORT INFORMATION
  Report Type: 
  Country: None (occurrence: None)
  Receive Date: 20061031
  Receipt Date: 20061018
  Transmission Date: 20070319
  Serious: Yes (Hospitalization)
  Sender: FDA-Public Use
  Company Number: 2006127503

PATIENT
  Age: 45 Year
  Sex: Male

DRUGS (4)
  1. CABERGOLINE [Suspect]
     Indication: PARKINSON'S DISEASE
     Dosage: 6 MG, ORAL
     Route: 048
  2. PERGOLIDE MESYLATE [Concomitant]
  3. AMANTADINE HCL [Concomitant]
  4. SELEGILINE          (SELEGILINE) [Concomitant]

REACTIONS (1)
  - AORTIC VALVE INCOMPETENCE [None]
